FAERS Safety Report 4462721-4 (Version None)
Quarter: 2004Q3

REPORT INFORMATION
  Report Type: 
  Country: None (occurrence: None)
  Receive Date: 20040927
  Receipt Date: 20040910
  Transmission Date: 20050211
  Serious: Yes (Other)
  Sender: FDA-Public Use
  Company Number: 200408348

PATIENT
  Age: 33 Year
  Sex: Female
  Weight: 94.8018 kg

DRUGS (1)
  1. RESTASIS [Suspect]
     Indication: KERATITIS

REACTIONS (1)
  - PLATELET COUNT DECREASED [None]
